FAERS Safety Report 8015703-X (Version None)
Quarter: 2011Q4

REPORT INFORMATION
  Report Type: 
  Country: None (occurrence: None)
  Receive Date: 20111230
  Receipt Date: 20111129
  Transmission Date: 20120403
  Serious: Yes (Death, Other)
  Sender: FDA-Public Use
  Company Number: PHHY2011NL109623

PATIENT
  Sex: Male

DRUGS (3)
  1. ZOMETA [Suspect]
     Dosage: 4 MG/5ML 1X PER 28 DAYS
     Dates: start: 20081107
  2. ZOMETA [Suspect]
     Dosage: 4 MG/5ML 1X PER 28 DAYS
     Dates: start: 20111102
  3. ZOMETA [Suspect]
     Dosage: 4 MG/5ML 1X PER 28 DAYS
     Dates: start: 20111129

REACTIONS (3)
  - GENERAL PHYSICAL HEALTH DETERIORATION [None]
  - DEATH [None]
  - TERMINAL STATE [None]
